FAERS Safety Report 9096372 (Version 1)
Quarter: 2013Q1

REPORT INFORMATION
  Report Type: Spontaneous
  Country: US (occurrence: None)
  Receive Date: 20130219
  Receipt Date: 20130219
  Transmission Date: 20140127
  Serious: No
  Sender: FDA-Public Use
  Company Number: None

PATIENT
  Sex: Female
  Weight: 68.04 kg

DRUGS (2)
  1. TRETINOIN [Suspect]
     Dosage: ,,, OHS
  2. TRETINOIN [Suspect]

REACTIONS (1)
  - Drug effect decreased [None]
